FAERS Safety Report 7342910-1 (Version None)
Quarter: 2011Q1

REPORT INFORMATION
  Report Type: 
  Country: None (occurrence: None)
  Receive Date: 20110308
  Receipt Date: 20110308
  Transmission Date: 20110831
  Serious: Yes (Other)
  Sender: FDA-Public Use
  Company Number: None

PATIENT
  Age: 29 Year
  Sex: Female
  Weight: 68.0396 kg

DRUGS (2)
  1. INVEGA SUSTENNA [Suspect]
     Dates: start: 20101217
  2. INVEGA SUSTENNA [Suspect]
     Indication: SCHIZOPHRENIA
     Dosage: 117MG MONTH IM
     Route: 030
     Dates: start: 20101118

REACTIONS (2)
  - PRODUCT QUALITY ISSUE [None]
  - INJECTION SITE PAIN [None]
